FAERS Safety Report 10975540 (Version 1)
Quarter: 2015Q2

REPORT INFORMATION
  Report Type: Spontaneous
  Country: FR (occurrence: FR)
  Receive Date: 20150401
  Receipt Date: 20150401
  Transmission Date: 20150821
  Serious: Yes (Other)
  Sender: FDA-Public Use
  Company Number: FR-ASTRAZENECA-2015SE28939

PATIENT
  Age: 6354 Day
  Sex: Male

DRUGS (8)
  1. XEROQUEL [Suspect]
     Active Substance: QUETIAPINE FUMARATE
     Route: 048
     Dates: start: 20150209, end: 20150209
  2. CLOPIXOL [Interacting]
     Active Substance: ZUCLOPENTHIXOL ACETATE
     Route: 048
     Dates: start: 20141212, end: 20150209
  3. DEPAKINE CHRONO [Concomitant]
     Active Substance: VALPROATE SODIUM
     Dosage: TWO TABLETS AND A HALF PER DAY
  4. ATARAX [Concomitant]
     Active Substance: HYDROXYZINE\HYDROXYZINE HYDROCHLORIDE
     Dosage: 25 MG THREE TABLETS A DAY
  5. RISPERDAL [Concomitant]
     Active Substance: RISPERIDONE
     Dosage: 1 MG PER DAY
  6. VENTOLINE [Concomitant]
     Active Substance: ALBUTEROL
     Dosage: 100 UG
  7. SERETIDE [Concomitant]
     Active Substance: FLUTICASONE FUROATE\SALMETEROL XINAFOATE
     Dosage: 500/50 UG, TWO PUFFS PER DAY
  8. LOXAPAC [Concomitant]
     Active Substance: LOXAPINE SUCCINATE
     Dosage: IN CASE OF NEED.

REACTIONS (3)
  - Tonic clonic movements [Recovered/Resolved]
  - Fall [Unknown]
  - Drug interaction [Recovered/Resolved]

NARRATIVE: CASE EVENT DATE: 20150210
